FAERS Safety Report 6695241-7 (Version None)
Quarter: 2010Q2

REPORT INFORMATION
  Report Type: 
  Country: None (occurrence: None)
  Receive Date: 20100423
  Receipt Date: 20100415
  Transmission Date: 20101027
  Serious: Yes (Hospitalization, Other)
  Sender: FDA-Public Use
  Company Number: FR-GILEAD-2010-0027390

PATIENT
  Sex: Male
  Weight: 78 kg

DRUGS (5)
  1. ATRIPLA [Suspect]
     Indication: HIV INFECTION
     Route: 048
     Dates: start: 20091101, end: 20100201
  2. ATRIPLA [Suspect]
     Dates: start: 20100301
  3. TRUVADA [Concomitant]
     Indication: HIV INFECTION
  4. SUSTIVA [Concomitant]
     Route: 048
     Dates: start: 20070101, end: 20100201
  5. IMOVANE [Concomitant]
     Indication: SLEEP DISORDER
     Route: 048
     Dates: start: 20070101

REACTIONS (2)
  - MALAISE [None]
  - NECROSIS [None]
